FAERS Safety Report 19565579 (Version 1)
Quarter: 2021Q3

REPORT INFORMATION
  Report Type: Spontaneous
  Country: US (occurrence: US)
  Receive Date: 20210715
  Receipt Date: 20210715
  Transmission Date: 20211014
  Serious: No
  Sender: FDA-Public Use
  Company Number: US-PFIZER INC-2021715067

PATIENT
  Age: 75 Year
  Sex: Male

DRUGS (1)
  1. CELEBREX [Suspect]
     Active Substance: CELECOXIB
     Indication: MYALGIA
     Dosage: 100 MG, AS NEEDED

REACTIONS (3)
  - Therapeutic product effect decreased [Unknown]
  - Blood creatinine increased [Unknown]
  - Off label use [Unknown]
